FAERS Safety Report 5245507-2 (Version None)
Quarter: 2007Q1

REPORT INFORMATION
  Report Type: 
  Country: None (occurrence: None)
  Receive Date: 20070223
  Receipt Date: 20070213
  Transmission Date: 20070707
  Serious: Yes (Other)
  Sender: FDA-Public Use
  Company Number: US-PFIZER INC-2007004868

PATIENT
  Sex: Female
  Weight: 48.1 kg

DRUGS (3)
  1. CHANTIX [Suspect]
     Indication: SMOKING CESSATION THERAPY
     Dates: start: 20070107, end: 20070111
  2. XANAX [Suspect]
     Indication: PANIC ATTACK
  3. ORAL CONTRACEPTIVE NOS [Concomitant]

REACTIONS (12)
  - ANXIETY [None]
  - BRONCHITIS [None]
  - CHEST DISCOMFORT [None]
  - CHEST PAIN [None]
  - COUGH [None]
  - DIARRHOEA [None]
  - DRUG EFFECT PROLONGED [None]
  - MYOCARDIAL INFARCTION [None]
  - NERVOUSNESS [None]
  - PANIC DISORDER [None]
  - SMOKER [None]
  - VOMITING [None]
